FAERS Safety Report 6169111-7 (Version None)
Quarter: 2009Q2

REPORT INFORMATION
  Report Type: 
  Country: None (occurrence: None)
  Receive Date: 20090427
  Receipt Date: 20090422
  Transmission Date: 20091009
  Serious: Yes (Other)
  Sender: FDA-Public Use
  Company Number: GB-WYE-G03559209

PATIENT
  Age: 21 Year
  Sex: Female

DRUGS (1)
  1. SIROLIMUS [Suspect]
     Dosage: UNKNOWN

REACTIONS (1)
  - AMENORRHOEA [None]
